FAERS Safety Report 9568752 (Version 2)
Quarter: 2013Q3

REPORT INFORMATION
  Report Type: Spontaneous
  Country: US (occurrence: US)
  Receive Date: 20130930
  Receipt Date: 20130930
  Transmission Date: 20140515
  Serious: No
  Sender: FDA-Public Use
  Company Number: US-AMGEN-USASP2013057850

PATIENT
  Age: 41 Year
  Sex: Female

DRUGS (6)
  1. ENBREL [Suspect]
     Indication: PRODUCT USED FOR UNKNOWN INDICATION
     Dosage: 50 MG, QWK
     Route: 058
     Dates: end: 2013
  2. PREDNISONE [Concomitant]
     Dosage: 1 MG, UNK
  3. ORTHO TRI-CYCLEN [Concomitant]
     Dosage: UNK
  4. EXCEDRIN                           /00110301/ [Concomitant]
     Dosage: UNK
  5. VITAMIN D                          /00107901/ [Concomitant]
     Dosage: 1000 UNIT, UNK
  6. MULTIVITAMINS, PLAIN [Concomitant]
     Dosage: UNK

REACTIONS (1)
  - Dermatitis psoriasiform [Unknown]
